FAERS Safety Report 7110816-9 (Version None)
Quarter: 2010Q4

REPORT INFORMATION
  Report Type: 
  Country: None (occurrence: None)
  Receive Date: 20101116
  Receipt Date: 20101116
  Transmission Date: 20110411
  Serious: No
  Sender: FDA-Public Use
  Company Number: None

PATIENT
  Age: 76 Year
  Sex: Male
  Weight: 65.7716 kg

DRUGS (3)
  1. TRAZODONE HCL [Suspect]
     Indication: INSOMNIA
     Dosage: 250 MG ONCE AT BEDTIME PO
     Route: 048
  2. LUNESTA [Suspect]
  3. TRAZODONE HCL [Suspect]

REACTIONS (5)
  - DRUG EFFECT INCREASED [None]
  - HYPERSOMNIA [None]
  - PRODUCT FORMULATION ISSUE [None]
  - PRODUCT SUBSTITUTION ISSUE [None]
  - SOMNOLENCE [None]
